FAERS Safety Report 13159862 (Version 2)
Quarter: 2017Q1

REPORT INFORMATION
  Report Type: Report from Study
  Country: JP (occurrence: JP)
  Receive Date: 20170127
  Receipt Date: 20170331
  Transmission Date: 20170428
  Serious: Yes (Death, Hospitalization, Other)
  Sender: FDA-Public Use
  Company Number: PHJP2016JP019725

PATIENT
  Age: 41 Year
  Sex: Female

DRUGS (3)
  1. TAFINLAR [Suspect]
     Active Substance: DABRAFENIB MESYLATE
     Indication: MALIGNANT MELANOMA
     Dosage: 150 MG, QD
     Route: 048
     Dates: start: 20160601
  2. TAFINLAR [Suspect]
     Active Substance: DABRAFENIB MESYLATE
     Dosage: 100 MG, QD
     Route: 048
     Dates: start: 20160721
  3. TRAMETINIB [Suspect]
     Active Substance: TRAMETINIB
     Indication: MALIGNANT MELANOMA
     Dosage: 2 MG, QD
     Route: 048
     Dates: start: 20160601, end: 20160720

REACTIONS (8)
  - Malignant melanoma [Fatal]
  - Hypoaesthesia [Recovering/Resolving]
  - Malignant neoplasm progression [Fatal]
  - Myoglobinuria [Recovering/Resolving]
  - Dementia Alzheimer^s type [Unknown]
  - Pyrexia [Recovered/Resolved]
  - Rhabdomyolysis [Recovering/Resolving]
  - Fall [Unknown]

NARRATIVE: CASE EVENT DATE: 20160615
